FAERS Safety Report 13455986 (Version 1)
Quarter: 2017Q2

REPORT INFORMATION
  Report Type: Spontaneous
  Country: US (occurrence: US)
  Receive Date: 20170419
  Receipt Date: 20170419
  Transmission Date: 20170830
  Serious: No
  Sender: FDA-Public Use
  Company Number: US-TARO-2017TAR00014

PATIENT
  Age: 17 Year
  Sex: Female
  Weight: 63.49 kg

DRUGS (4)
  1. FLUOROURACIL TOPICAL CREAM USP 5% [Suspect]
     Active Substance: FLUOROURACIL
     Indication: ACNE
     Dosage: UNK, 1X/DAY AT BEDTIME
     Route: 061
     Dates: start: 201605, end: 201608
  2. FLOVENT [Concomitant]
     Active Substance: FLUTICASONE PROPIONATE
     Dosage: UNK, 1X/DAY
  3. PROAIR HFA [Concomitant]
     Active Substance: ALBUTEROL SULFATE
     Dosage: UNK, AS NEEDED
  4. OTC ACNE CREAMS [Concomitant]

REACTIONS (9)
  - Secretion discharge [Not Recovered/Not Resolved]
  - Seborrhoea [Not Recovered/Not Resolved]
  - Wrong drug administered [Recovered/Resolved]
  - Acne cystic [Not Recovered/Not Resolved]
  - Pruritus [Not Recovered/Not Resolved]
  - Tenderness [Not Recovered/Not Resolved]
  - Drug administered to patient of inappropriate age [Recovered/Resolved]
  - Off label use [Recovered/Resolved]
  - Oropharyngeal pain [Not Recovered/Not Resolved]

NARRATIVE: CASE EVENT DATE: 201605
